FAERS Safety Report 21806931 (Version 2)
Quarter: 2023Q1

REPORT INFORMATION
  Report Type: Spontaneous
  Country: US (occurrence: US)
  Receive Date: 20230102
  Receipt Date: 20230106
  Transmission Date: 20230417
  Serious: Yes (Other)
  Sender: FDA-Public Use
  Company Number: US-BAUSCH-BL-2022-028261

PATIENT
  Age: 74 Year
  Sex: Female

DRUGS (2)
  1. ALBUTEROL [Suspect]
     Active Substance: ALBUTEROL
     Indication: Hyperthyroidism
     Dosage: 16 PUFFS THE DAY BEFORE
     Route: 055
  2. PREDNISONE [Concomitant]
     Active Substance: PREDNISONE
     Indication: Asthma
     Dosage: STARTED 3 DAYS BEFORE PRESENTATION
     Route: 048

REACTIONS (1)
  - Stress cardiomyopathy [Recovering/Resolving]
